FAERS Safety Report 23482173 (Version 1)
Quarter: 2024Q1

REPORT INFORMATION
  Report Type: Report from Study
  Country: US (occurrence: US)
  Receive Date: 20240205
  Receipt Date: 20240205
  Transmission Date: 20240410
  Serious: Yes (Death, Other)
  Sender: FDA-Public Use
  Company Number: US-JAZZ PHARMACEUTICALS-2023-US-021685

PATIENT
  Age: 7 Year
  Sex: Male

DRUGS (2)
  1. EPIDIOLEX [Suspect]
     Active Substance: CANNABIDIOL
     Indication: Lennox-Gastaut syndrome
     Dosage: 1 MILLILITER, BID, G TUBE
     Dates: start: 201901
  2. EPIDIOLEX [Suspect]
     Active Substance: CANNABIDIOL
     Indication: Status epilepticus
     Dosage: 100 MILLIGRAM, VIA G TUBE
     Dates: start: 201901

REACTIONS (2)
  - Death [Fatal]
  - Respiratory tract infection [Unknown]

NARRATIVE: CASE EVENT DATE: 20231220
